FAERS Safety Report 5534973-0 (Version None)
Quarter: 2007Q4

REPORT INFORMATION
  Report Type: 
  Country: None (occurrence: None)
  Receive Date: 20071205
  Receipt Date: 20071024
  Transmission Date: 20080405
  Serious: Yes (Hospitalization)
  Sender: FDA-Public Use
  Company Number: US-GILEAD-2007-0013984

PATIENT
  Sex: Male
  Weight: 116.22 kg

DRUGS (17)
  1. AMBRISENTAN [Suspect]
     Indication: PULMONARY HYPERTENSION
     Route: 048
     Dates: start: 20070927
  2. AMBRISENTAN [Suspect]
     Route: 048
     Dates: start: 20070803, end: 20070926
  3. SILDENAFIL CITRATE [Concomitant]
     Indication: PULMONARY HYPERTENSION
     Route: 048
     Dates: start: 20070401
  4. LOPRESSOR [Concomitant]
     Indication: HYPERTENSION
     Route: 048
     Dates: start: 20070601
  5. DIOVAN [Concomitant]
     Indication: HYPERTENSION
     Route: 048
     Dates: start: 20061003
  6. LASIX [Concomitant]
     Indication: PULMONARY HYPERTENSION
     Route: 048
     Dates: start: 20070606
  7. LASIX [Concomitant]
     Route: 048
     Dates: start: 20071001
  8. OMEPRAZOLE [Concomitant]
     Indication: GASTROOESOPHAGEAL REFLUX DISEASE
     Route: 048
     Dates: start: 20061003
  9. DULCOLAX [Concomitant]
     Indication: CONSTIPATION
     Route: 048
     Dates: start: 20070713
  10. ADVAIR DISKUS 100/50 [Concomitant]
     Indication: CHRONIC OBSTRUCTIVE PULMONARY DISEASE
     Route: 054
     Dates: start: 20061003
  11. SPIRIVA [Concomitant]
     Indication: CHRONIC OBSTRUCTIVE PULMONARY DISEASE
     Route: 054
     Dates: start: 20070122
  12. COMBIVENT [Concomitant]
     Indication: CHRONIC OBSTRUCTIVE PULMONARY DISEASE
     Route: 055
     Dates: start: 20061010
  13. NYSTATIN SWISH AND SWALLOW [Concomitant]
     Indication: CANDIDIASIS
     Route: 048
     Dates: start: 20070724
  14. ATIVAN [Concomitant]
     Indication: ANXIETY
     Route: 048
     Dates: start: 20070122
  15. COUMADIN [Concomitant]
     Indication: PULMONARY HYPERTENSION
     Route: 048
     Dates: start: 20070805
  16. OXYGEN [Concomitant]
     Indication: PULMONARY HYPERTENSION
     Route: 055
     Dates: start: 20061201
  17. OXYGEN [Concomitant]
     Indication: CHRONIC OBSTRUCTIVE PULMONARY DISEASE

REACTIONS (1)
  - RIGHT VENTRICULAR FAILURE [None]
